FAERS Safety Report 6020196-8 (Version None)
Quarter: 2008Q4

REPORT INFORMATION
  Report Type: 
  Country: None (occurrence: None)
  Receive Date: 20081223
  Receipt Date: 20081223
  Transmission Date: 20090506
  Serious: No
  Sender: FDA-Public Use
  Company Number: None

PATIENT
  Age: 40 Year
  Sex: Female
  Weight: 79.3795 kg

DRUGS (2)
  1. FLUOXETINE [Suspect]
     Indication: ANXIETY
     Dosage: 1 TEASPOON DAILY PO
     Route: 048
  2. FLUOXETINE [Suspect]
     Indication: PREMENSTRUAL SYNDROME
     Dosage: 1 TEASPOON DAILY PO
     Route: 048

REACTIONS (3)
  - PALPITATIONS [None]
  - POLLAKIURIA [None]
  - PRODUCT QUALITY ISSUE [None]
